FAERS Safety Report 10965817 (Version 1)
Quarter: 2015Q1

REPORT INFORMATION
  Report Type: Spontaneous
  Country: IT (occurrence: IT)
  Receive Date: 20150330
  Receipt Date: 20150330
  Transmission Date: 20150721
  Serious: Yes (Other)
  Sender: FDA-Public Use
  Company Number: IT-TEVA-549963ACC

PATIENT
  Age: 63 Year
  Sex: Female

DRUGS (2)
  1. OXALIPLATINO TEVA - TEVA ITALIA S.R.L. [Suspect]
     Active Substance: OXALIPLATIN
     Indication: RECTAL CANCER
     Dosage: 156 MG CYCLICAL
     Route: 042
     Dates: start: 20140909, end: 20150320
  2. LIMPIDEX - 30 MG CAPSULE RIGIDE [Concomitant]
     Indication: SUPPORTIVE CARE
     Dosage: 30 MG
     Route: 048
     Dates: start: 20140909, end: 20150320

REACTIONS (4)
  - Hypotension [Recovered/Resolved]
  - Malaise [Recovered/Resolved]
  - Generalised erythema [Recovered/Resolved]
  - Bronchospasm [Recovered/Resolved]

NARRATIVE: CASE EVENT DATE: 20150320
